FAERS Safety Report 8176255-7 (Version None)
Quarter: 2012Q1

REPORT INFORMATION
  Report Type: 
  Country: None (occurrence: None)
  Receive Date: 20120301
  Receipt Date: 20120224
  Transmission Date: 20120608
  Serious: Yes (Other)
  Sender: FDA-Public Use
  Company Number: AU-B.I. PHARMACEUTICALS,INC./RIDGEFIELD-2012-AU-00376AU

PATIENT
  Age: 74 Year
  Sex: Female

DRUGS (1)
  1. MICARDIS HCT [Suspect]
     Dosage: 80/12.5MG

REACTIONS (2)
  - PANCREATIC CARCINOMA METASTATIC [None]
  - ABDOMINAL PAIN [None]
